FAERS Safety Report 7936928-5 (Version None)
Quarter: 2011Q4

REPORT INFORMATION
  Report Type: 
  Country: None (occurrence: None)
  Receive Date: 20111123
  Receipt Date: 20111121
  Transmission Date: 20120403
  Serious: No
  Sender: FDA-Public Use
  Company Number: US-PFIZER INC-2011284907

PATIENT
  Sex: Male
  Weight: 88.4 kg

DRUGS (6)
  1. LYRICA [Suspect]
     Indication: NEURALGIA
     Dosage: 150 MG, UNK
     Route: 048
     Dates: start: 20050101
  2. RANITIDINE [Concomitant]
     Dosage: UNK
  3. LYRICA [Suspect]
     Indication: PARAESTHESIA
     Dosage: 225 MG, 3X/DAY
     Route: 048
  4. TIZANIDINE [Concomitant]
     Dosage: UNK
  5. PROTONIX [Concomitant]
     Dosage: UNK
  6. DOMPERIDONE [Concomitant]
     Dosage: UNK

REACTIONS (2)
  - PAIN [None]
  - DRUG INEFFECTIVE [None]
